FAERS Safety Report 10352710 (Version 2)
Quarter: 2014Q3

REPORT INFORMATION
  Report Type: Report from Study
  Country: US (occurrence: US)
  Receive Date: 20140730
  Receipt Date: 20140730
  Transmission Date: 20150326
  Serious: No
  Sender: FDA-Public Use
  Company Number: US-ABBVIE-13P-163-1159097-00

PATIENT
  Age: 62 Year
  Sex: Female
  Weight: 78.54 kg

DRUGS (11)
  1. LEVOTHYROXINE [Suspect]
     Active Substance: LEVOTHYROXINE
     Indication: HYPOTHYROIDISM
     Dates: start: 2012, end: 2013
  2. VITAMIN B COMPLEX [Concomitant]
     Active Substance: CYANOCOBALAMIN\DEXPANTHENOL\NIACINAMIDE\PYRIDOXINE HYDROCHLORIDE\RIBOFLAVIN 5^-PHOSPHATE SODIUM\THIAMINE HYDROCHLORIDE\VITAMIN B COMPLEX
     Indication: DEPRESSION
  3. OMEGA 3 6 9 [Concomitant]
     Indication: BLOOD CHOLESTEROL
  4. SYNTHROID [Suspect]
     Active Substance: LEVOTHYROXINE SODIUM
     Indication: PRODUCT USED FOR UNKNOWN INDICATION
  5. ADVIL [Concomitant]
     Active Substance: IBUPROFEN
     Indication: ARTHRITIS
  6. ADVIL [Concomitant]
     Active Substance: IBUPROFEN
     Indication: FIBROMYALGIA
  7. TYLENOL [Concomitant]
     Active Substance: ACETAMINOPHEN
     Indication: ARTHRITIS
  8. TYLENOL [Concomitant]
     Active Substance: ACETAMINOPHEN
     Indication: FIBROMYALGIA
  9. SYNTHROID [Suspect]
     Active Substance: LEVOTHYROXINE SODIUM
     Indication: HYPOTHYROIDISM
     Dosage: MONDAY THRU SATURDAY
     Dates: start: 201309
  10. SYNTHROID [Suspect]
     Active Substance: LEVOTHYROXINE SODIUM
  11. ARMOUR THYROID [Suspect]
     Active Substance: THYROID, PORCINE\THYROID, UNSPECIFIED
     Indication: PRODUCT USED FOR UNKNOWN INDICATION
     Dates: start: 2013, end: 201309

REACTIONS (4)
  - Hot flush [Recovering/Resolving]
  - Constipation [Not Recovered/Not Resolved]
  - Abnormal dreams [Not Recovered/Not Resolved]
  - Diarrhoea [Recovered/Resolved]

NARRATIVE: CASE EVENT DATE: 201312
